FAERS Safety Report 9137109 (Version 2)
Quarter: 2013Q4

REPORT INFORMATION
  Report Type: Report from Study
  Country: US (occurrence: US)
  Receive Date: 20130304
  Receipt Date: 20131213
  Transmission Date: 20140711
  Serious: Yes (Hospitalization)
  Sender: FDA-Public Use
  Company Number: US-009507513-1302USA013382

PATIENT
  Age: 69 Year
  Sex: Female
  Weight: 81.63 kg

DRUGS (3)
  1. BOCEPREVIR [Suspect]
     Indication: CHRONIC HEPATITIS C
     Dosage: UNK
     Route: 048
     Dates: start: 20120706
  2. REBETOL [Suspect]
     Indication: CHRONIC HEPATITIS C
     Dosage: 200 MG, BID
     Route: 048
     Dates: end: 20130124
  3. PEGASYS [Suspect]
     Indication: CHRONIC HEPATITIS C
     Dosage: 80 MICROGRAM, QW
     Dates: end: 20130124

REACTIONS (2)
  - Rectal haemorrhage [Not Recovered/Not Resolved]
  - Platelet count decreased [Recovered/Resolved]
